FAERS Safety Report 21740939 (Version 1)
Quarter: 2022Q4

REPORT INFORMATION
  Report Type: Spontaneous
  Country: HR (occurrence: HR)
  Receive Date: 20221216
  Receipt Date: 20221216
  Transmission Date: 20230113
  Serious: Yes (Other)
  Sender: FDA-Public Use
  Company Number: HR-BRISTOL-MYERS SQUIBB COMPANY-2022-153665

PATIENT
  Age: 67 Year
  Sex: Male
  Weight: 107 kg

DRUGS (3)
  1. ELIQUIS [Suspect]
     Active Substance: APIXABAN
     Indication: Cerebrovascular accident prophylaxis
     Dates: start: 202010
  2. BISOPROLOL [Suspect]
     Active Substance: BISOPROLOL
     Indication: Product used for unknown indication
     Dates: start: 202010
  3. BISOPROLOL [Suspect]
     Active Substance: BISOPROLOL
     Dates: start: 202010

REACTIONS (4)
  - Arrhythmia supraventricular [Unknown]
  - Sinus rhythm [Unknown]
  - Hyperthyroidism [Unknown]
  - Palpitations [Unknown]

NARRATIVE: CASE EVENT DATE: 20201201
